FAERS Safety Report 5459009-1 (Version None)
Quarter: 2007Q3

REPORT INFORMATION
  Report Type: 
  Country: None (occurrence: None)
  Receive Date: 20070919
  Receipt Date: 20070912
  Transmission Date: 20080115
  Serious: Yes (Other)
  Sender: FDA-Public Use
  Company Number: US-ASTRAZENECA-2007UW21542

PATIENT
  Age: 68 Year
  Sex: Female
  Weight: 61.7 kg

DRUGS (5)
  1. ARIMIDEX [Suspect]
     Indication: BREAST CANCER
     Route: 048
     Dates: start: 20070414
  2. ATENOLOL [Concomitant]
     Route: 048
  3. LORATADINE [Concomitant]
  4. NASONEX SPRAY [Concomitant]
  5. VITAMINS [Concomitant]

REACTIONS (1)
  - LEUKOCYTOCLASTIC VASCULITIS [None]
